FAERS Safety Report 17830889 (Version 2)
Quarter: 2020Q2

REPORT INFORMATION
  Report Type: Report from Study
  Country: US (occurrence: US)
  Receive Date: 20200527
  Receipt Date: 20200624
  Transmission Date: 20200714
  Serious: Yes (Hospitalization, Other)
  Sender: FDA-Public Use
  Company Number: US-SHIRE-US202017263

PATIENT
  Sex: Female

DRUGS (2)
  1. TEDUGLUTIDE [Suspect]
     Active Substance: TEDUGLUTIDE
     Indication: PRODUCT USED FOR UNKNOWN INDICATION
     Dosage: 0.2500 (UNIT UNKNOWN), 1X/DAY:QD
     Route: 058
     Dates: start: 20180615
  2. TEDUGLUTIDE [Suspect]
     Active Substance: TEDUGLUTIDE
     Dosage: 30 MILLILITER, 1X/DAY:QD
     Route: 058

REACTIONS (3)
  - Infection [Unknown]
  - Near death experience [Recovering/Resolving]
  - Product dose omission [Not Recovered/Not Resolved]
